FAERS Safety Report 4534709-6 (Version None)
Quarter: 2004Q4

REPORT INFORMATION
  Report Type: 
  Country: None (occurrence: None)
  Receive Date: 20041222
  Receipt Date: 20031121
  Transmission Date: 20050328
  Serious: Yes (Disabling)
  Sender: FDA-Public Use
  Company Number: US-BRISTOL-MYERS SQUIBB COMPANY-12441853

PATIENT
  Age: 67 Year
  Sex: Male

DRUGS (4)
  1. PRAVACHOL [Suspect]
     Indication: BLOOD CHOLESTEROL INCREASED
     Dosage: DURATION OF THERAPY:  ^5-6 YEARS^
     Route: 048
  2. TOPROL-XL [Concomitant]
  3. LOTREL [Concomitant]
  4. CELEBREX [Concomitant]

REACTIONS (1)
  - TREMOR [None]
